FAERS Safety Report 7815161-1 (Version None)
Quarter: 2011Q4

REPORT INFORMATION
  Report Type: 
  Country: None (occurrence: None)
  Receive Date: 20111014
  Receipt Date: 20111004
  Transmission Date: 20120403
  Serious: Yes (Death)
  Sender: FDA-Public Use
  Company Number: US-TYCO HEALTHCARE/MALLINCKRODT-T201101960

PATIENT

DRUGS (1)
  1. NALTREXONE HYDROCHLORIDE [Suspect]
     Indication: DRUG DEPENDENCE
     Dosage: UNKNOWN

REACTIONS (1)
  - DEATH [None]
